FAERS Safety Report 10213460 (Version 3)
Quarter: 2015Q4

REPORT INFORMATION
  Report Type: Spontaneous
  Country: US (occurrence: None)
  Receive Date: 20140529
  Receipt Date: 20151223
  Transmission Date: 20160304
  Serious: Yes (Hospitalization, Other)
  Sender: FDA-Public Use
  Company Number: ADR-2012-02029

PATIENT
  Sex: Female

DRUGS (1)
  1. LIORESAL [Suspect]
     Active Substance: BACLOFEN
     Indication: MUSCLE SPASTICITY
     Dosage: 300 MCG/DAY

REACTIONS (21)
  - Dyspnoea [None]
  - Overdose [None]
  - Therapeutic response decreased [None]
  - Vomiting [None]
  - Insomnia [None]
  - Muscle contracture [None]
  - Impaired healing [None]
  - Arthralgia [None]
  - Performance status decreased [None]
  - Peroneal nerve palsy [None]
  - Muscle tightness [None]
  - Respiratory depression [None]
  - Muscle spasms [None]
  - Hypotonia [None]
  - Sedation [None]
  - Coma [None]
  - Fall [None]
  - Back pain [None]
  - Muscle spasticity [None]
  - Weight decreased [None]
  - Medical device site fibrosis [None]
